FAERS Safety Report 6441459-8 (Version None)
Quarter: 2009Q4

REPORT INFORMATION
  Report Type: 
  Country: None (occurrence: None)
  Receive Date: 20091116
  Receipt Date: 20091112
  Transmission Date: 20100525
  Serious: Yes (Hospitalization)
  Sender: FDA-Public Use
  Company Number: A0816768A

PATIENT
  Age: 56 Year
  Sex: Female

DRUGS (2)
  1. PROMACTA [Suspect]
     Dosage: 1TAB PER DAY
     Route: 048
     Dates: start: 20090801, end: 20091001
  2. XANAX [Concomitant]

REACTIONS (4)
  - BREAST PAIN [None]
  - DRUG INEFFECTIVE [None]
  - HEPATIC CIRRHOSIS [None]
  - HEPATITIS C [None]
